FAERS Safety Report 8551307-8 (Version None)
Quarter: 2012Q3

REPORT INFORMATION
  Report Type: 
  Country: None (occurrence: None)
  Receive Date: 20120730
  Receipt Date: 20120319
  Transmission Date: 20120928
  Serious: No
  Sender: FDA-Public Use
  Company Number: US-ALLERGAN-1201113US

PATIENT
  Sex: Female

DRUGS (2)
  1. UNSPECIFIED EYE DROP [Concomitant]
     Indication: EYE ALLERGY
     Dosage: UNK
     Route: 047
  2. LATISSE [Suspect]
     Indication: GROWTH OF EYELASHES
     Dosage: UNK
     Route: 061

REACTIONS (2)
  - ACCIDENTAL EXPOSURE [None]
  - OCULAR HYPERAEMIA [None]
